FAERS Safety Report 7960292-9 (Version None)
Quarter: 2011Q4

REPORT INFORMATION
  Report Type: 
  Country: None (occurrence: None)
  Receive Date: 20111206
  Receipt Date: 20111202
  Transmission Date: 20120403
  Serious: Yes (Life-Threatening, Hospitalization)
  Sender: FDA-Public Use
  Company Number: PHHY2011CA90918

PATIENT
  Sex: Female

DRUGS (10)
  1. LISINOPRIL [Concomitant]
     Dosage: 20 MG, BID
  2. LISINOPRIL [Concomitant]
     Dosage: 20 MG, QD
  3. ATENOLOL [Concomitant]
     Dosage: 50 MG, BID
  4. BISOPROLOL FUMARATE [Concomitant]
     Dosage: 5 MG, QD
  5. ADALAT [Concomitant]
     Dosage: 90 MG, QD
  6. RASILEZ [Suspect]
     Indication: BLOOD PRESSURE
     Dosage: 150 MG, QD
     Route: 048
     Dates: start: 20110113, end: 20110214
  7. BETA BLOCKING AGENTS [Concomitant]
     Dosage: 50 MG, QD
  8. BETA BLOCKING AGENTS [Concomitant]
     Dosage: 50 MG, BID
  9. HYDRALAZINE HCL [Concomitant]
  10. NORVASC [Concomitant]
     Dosage: 10 MG, QD

REACTIONS (3)
  - CARDIAC FAILURE CONGESTIVE [None]
  - HEART RATE INCREASED [None]
  - ARRHYTHMIA [None]
